FAERS Safety Report 5233614-X (Version None)
Quarter: 2007Q1

REPORT INFORMATION
  Report Type: 
  Country: None (occurrence: None)
  Receive Date: 20061208
  Receipt Date: 20060227
  Transmission Date: 20070707
  Serious: Yes (Other)
  Sender: FDA-Public Use
  Company Number: 2006UW03368

PATIENT
  Age: 53 Year
  Sex: Male
  Weight: 104.32 kg

DRUGS (5)
  1. CRESTOR [Suspect]
     Indication: BLOOD CHOLESTEROL INCREASED
     Dosage: 5 MG QD PO
     Route: 048
     Dates: start: 20060101
  2. OXYCONTIN [Concomitant]
  3. DIAZEPAM [Concomitant]
  4. TOPROL-XL [Concomitant]
  5. TEMAZEPAM [Concomitant]

REACTIONS (3)
  - ARTHRALGIA [None]
  - MYALGIA [None]
  - NIPPLE PAIN [None]
